FAERS Safety Report 26074494 (Version 2)
Quarter: 2025Q4

REPORT INFORMATION
  Report Type: Spontaneous
  Country: JP (occurrence: JP)
  Receive Date: 20251121
  Receipt Date: 20251224
  Transmission Date: 20260117
  Serious: Yes (Life-Threatening, Hospitalization, Other)
  Sender: ASTELLAS
  Company Number: JP-ASTELLAS-2025-AER-063468

PATIENT
  Age: 72 Year
  Sex: Female

DRUGS (20)
  1. TACROLIMUS [Suspect]
     Active Substance: TACROLIMUS
     Indication: Immune-mediated myositis
     Route: 065
  2. TACROLIMUS [Suspect]
     Active Substance: TACROLIMUS
     Indication: Interstitial lung disease
  3. PREDNISOLONE [Concomitant]
     Active Substance: PREDNISOLONE
     Indication: Immune-mediated myositis
     Route: 065
  4. PREDNISOLONE [Concomitant]
     Active Substance: PREDNISOLONE
     Indication: Interstitial lung disease
     Route: 065
  5. PREDNISOLONE [Concomitant]
     Active Substance: PREDNISOLONE
     Route: 065
  6. PREDNISOLONE [Concomitant]
     Active Substance: PREDNISOLONE
     Route: 065
  7. PREDNISOLONE [Concomitant]
     Active Substance: PREDNISOLONE
     Route: 065
  8. HUMAN IMMUNOGLOBULIN G [Concomitant]
     Active Substance: HUMAN IMMUNOGLOBULIN G
     Indication: Immune-mediated myositis
     Route: 042
  9. HUMAN IMMUNOGLOBULIN G [Concomitant]
     Active Substance: HUMAN IMMUNOGLOBULIN G
     Indication: Interstitial lung disease
     Route: 042
  10. BETAMETHASONE [Concomitant]
     Active Substance: BETAMETHASONE
     Indication: Immune-mediated myositis
     Route: 042
  11. BETAMETHASONE [Concomitant]
     Active Substance: BETAMETHASONE
     Indication: Interstitial lung disease
     Route: 042
  12. BETAMETHASONE [Concomitant]
     Active Substance: BETAMETHASONE
     Route: 042
  13. BETAMETHASONE [Concomitant]
     Active Substance: BETAMETHASONE
     Route: 042
  14. BETAMETHASONE [Concomitant]
     Active Substance: BETAMETHASONE
     Route: 042
  15. BETAMETHASONE [Concomitant]
     Active Substance: BETAMETHASONE
     Route: 042
  16. BETAMETHASONE [Concomitant]
     Active Substance: BETAMETHASONE
     Route: 042
  17. RITUXIMAB [Concomitant]
     Active Substance: RITUXIMAB
     Indication: Immune-mediated myositis
     Dosage: 500MG/BODY/WEEK
     Route: 042
  18. RITUXIMAB [Concomitant]
     Active Substance: RITUXIMAB
     Indication: Interstitial lung disease
     Dosage: 500MG/BODY/WEEK
     Route: 042
  19. RITUXIMAB [Concomitant]
     Active Substance: RITUXIMAB
     Dosage: 500MG/BODY/WEEK
     Route: 042
  20. RITUXIMAB [Concomitant]
     Active Substance: RITUXIMAB
     Dosage: 500MG/BODY/WEEK
     Route: 042

REACTIONS (2)
  - Thrombotic microangiopathy [Recovering/Resolving]
  - Off label use [Unknown]
